FAERS Safety Report 18016479 (Version 2)
Quarter: 2020Q3

REPORT INFORMATION
  Report Type: Spontaneous
  Country: US (occurrence: US)
  Receive Date: 20200714
  Receipt Date: 20200911
  Transmission Date: 20201103
  Serious: No
  Sender: FDA-Public Use
  Company Number: US-ASTRAZENECA-2020SE87292

PATIENT
  Sex: Male

DRUGS (1)
  1. SYMBICORT [Suspect]
     Active Substance: BUDESONIDE\FORMOTEROL FUMARATE DIHYDRATE
     Dosage: 160/4.5 UG UNKNOWN FREQUENCY, 120 DOSES UNKNOWN
     Route: 055

REACTIONS (5)
  - Wrong technique in device usage process [Recovered/Resolved]
  - Dyspnoea [Unknown]
  - Product dose omission issue [Recovered/Resolved]
  - Product storage error [Unknown]
  - Drug delivery system issue [Unknown]
